FAERS Safety Report 24808728 (Version 1)
Quarter: 2025Q1

REPORT INFORMATION
  Report Type: Report from Study
  Country: US (occurrence: US)
  Receive Date: 20250106
  Receipt Date: 20250106
  Transmission Date: 20250408
  Serious: Yes (Other)
  Sender: ABBVIE
  Company Number: US-ABBVIE-6070192

PATIENT
  Sex: Female
  Weight: 54 kg

DRUGS (1)
  1. RESTASIS [Suspect]
     Active Substance: CYCLOSPORINE
     Indication: Dry eye
     Dosage: 0.5MG/ML, FORM STRENGTH: 0.05 MILLIGRAM/MILLILITERS, START DATE TEXT: 5-6 YEARS AGO
     Route: 047
     Dates: start: 2019

REACTIONS (3)
  - Chondropathy [Recovering/Resolving]
  - Pseudomonas infection [Recovered/Resolved]
  - Arthralgia [Unknown]

NARRATIVE: CASE EVENT DATE: 20231109
